FAERS Safety Report 7967699-4 (Version None)
Quarter: 2011Q4

REPORT INFORMATION
  Report Type: 
  Country: None (occurrence: None)
  Receive Date: 20111207
  Receipt Date: 20111122
  Transmission Date: 20120403
  Serious: Yes (Hospitalization)
  Sender: FDA-Public Use
  Company Number: 1000024549

PATIENT
  Age: 67 Year
  Sex: Male
  Weight: 45 kg

DRUGS (14)
  1. ALBUTEROL SULFATE [Concomitant]
  2. PANZYTRAT (PANCREATIN) [Concomitant]
  3. LISINOPRIL [Concomitant]
  4. METOHEXAL (METOPROLOL TARTRATE) [Concomitant]
  5. VALPROATE SODIUM [Concomitant]
  6. ASS (ACETYLSALICYLIC ACID (ACETYLSALICYLIC ACID) [Concomitant]
  7. KEPPRA [Concomitant]
  8. VITAMIN B12 [Concomitant]
  9. FUROSEMIDE [Concomitant]
  10. ROFLUMILAST (ROFLUMILAST) (TABLETS) [Suspect]
     Indication: CHRONIC OBSTRUCTIVE PULMONARY DISEASE
     Dosage: 500 MCG (500 MCG, 1 IN 1 D) ORAL
     Route: 048
     Dates: start: 20110127, end: 20111026
  11. FORADIL [Concomitant]
  12. OXYGEN (OXYGEN) [Concomitant]
  13. LISIHEXAL (LISINOPRIL) [Concomitant]
  14. SPIRIVA [Concomitant]

REACTIONS (3)
  - COMPUTERISED TOMOGRAM ABNORMAL [None]
  - WEIGHT DECREASED [None]
  - EPILEPSY [None]
